FAERS Safety Report 20735548 (Version 1)
Quarter: 2022Q2

REPORT INFORMATION
  Report Type: Spontaneous
  Country: US (occurrence: None)
  Receive Date: 20220421
  Receipt Date: 20220421
  Transmission Date: 20220721
  Serious: Yes (Life-Threatening)
  Sender: FDA-Public Use
  Company Number: None

PATIENT
  Sex: Male

DRUGS (7)
  1. ENBREL [Suspect]
     Active Substance: ETANERCEPT
     Indication: Rheumatoid arthritis
     Dosage: FREQUENCY : WEEKLY;?
     Route: 058
     Dates: start: 20210922
  2. DILTIAZEM [Concomitant]
     Active Substance: DILTIAZEM
  3. FENOFIBRATE [Concomitant]
     Active Substance: FENOFIBRATE
  4. FOLIC ACID [Concomitant]
     Active Substance: FOLIC ACID
  5. HYZAAR [Concomitant]
     Active Substance: HYDROCHLOROTHIAZIDE\LOSARTAN POTASSIUM
  6. ZOCOR [Concomitant]
     Active Substance: SIMVASTATIN
  7. ZOLOFT [Concomitant]
     Active Substance: SERTRALINE HYDROCHLORIDE

REACTIONS (3)
  - Myocardial infarction [None]
  - Rash [None]
  - Therapy interrupted [None]
